FAERS Safety Report 4956031-6 (Version None)
Quarter: 2006Q1

REPORT INFORMATION
  Report Type: 
  Country: None (occurrence: None)
  Receive Date: 20060201
  Receipt Date: 20051020
  Transmission Date: 20060701
  Serious: No
  Sender: FDA-Public Use
  Company Number: FACT0500632

PATIENT
  Age: 78 Year
  Sex: Female
  Weight: 60.3 kg

DRUGS (2)
  1. FACTIVE [Suspect]
     Indication: RESPIRATORY TRACT INFECTION BACTERIAL
     Dosage: 320 MG QD ORAL
     Route: 048
     Dates: start: 20051017
  2. STEROID () INJECTION [Suspect]
     Indication: BRONCHITIS
     Dosage: SINGLE
     Route: 065
     Dates: start: 20051017, end: 20051017

REACTIONS (3)
  - ABDOMINAL PAIN UPPER [None]
  - CONSTIPATION [None]
  - DIZZINESS [None]
